FAERS Safety Report 9222616 (Version 1)
Quarter: 2013Q1

REPORT INFORMATION
  Report Type: Spontaneous
  Country: US (occurrence: None)
  Receive Date: 20120914
  Receipt Date: 20120914
  Transmission Date: 20140127
  Serious: Yes (Other)
  Sender: FDA-Public Use
  Company Number: JPI-P-021540

PATIENT
  Age: 35 Year
  Sex: Female

DRUGS (6)
  1. XYREM (500 MILLIGRAM/MILLILITERS, SOLUTION) (SODIUM OXYBATE) [Suspect]
     Indication: NARCOLEPSY
     Route: 048
     Dates: start: 20091218
  2. METRONIDAZOLE [Suspect]
     Indication: VAGINITIS BACTERIAL
     Dates: start: 201203
  3. UNSPECIFIED ANTIBIOTIC [Suspect]
     Indication: VAGINITIS BACTERIAL
  4. ZALEPLON [Concomitant]
  5. PROTRIPTYLINE HYDROCHLORIDE [Concomitant]
  6. ARMODAFINIL [Concomitant]

REACTIONS (5)
  - Blood pressure increased [None]
  - Vaginitis bacterial [None]
  - Dizziness [None]
  - Headache [None]
  - Urinary tract infection [None]
